FAERS Safety Report 18539786 (Version 1)
Quarter: 2020Q4

REPORT INFORMATION
  Report Type: Spontaneous
  Country: SA (occurrence: SA)
  Receive Date: 20201124
  Receipt Date: 20201124
  Transmission Date: 20210114
  Serious: Yes (Other)
  Sender: FDA-Public Use
  Company Number: SA-HIKMA PHARMACEUTICALS USA INC.-SA-H14001-20-05244

PATIENT
  Age: 3 Year

DRUGS (1)
  1. METHYLPREDNISOLONE. [Suspect]
     Active Substance: METHYLPREDNISOLONE
     Indication: PRODUCT USED FOR UNKNOWN INDICATION
     Dosage: UNKNOWN
     Route: 042

REACTIONS (4)
  - Haemodynamic instability [Unknown]
  - Therapy non-responder [Unknown]
  - Bradycardia [Unknown]
  - Hypotension [Unknown]
